FAERS Safety Report 13601108 (Version 1)
Quarter: 2017Q2

REPORT INFORMATION
  Report Type: Spontaneous
  Country: DE (occurrence: DE)
  Receive Date: 20170601
  Receipt Date: 20170601
  Transmission Date: 20170830
  Serious: Yes (Other)
  Sender: FDA-Public Use
  Company Number: DE-AUROBINDO-AUR-APL-2017-35009

PATIENT
  Age: 66 Year
  Sex: Male

DRUGS (17)
  1. ROHYPNOL [Suspect]
     Active Substance: FLUNITRAZEPAM
     Dosage: 1 MG, ONCE A DAY
     Route: 048
     Dates: start: 20160730, end: 20160905
  2. OLANZAPINE. [Suspect]
     Active Substance: OLANZAPINE
     Indication: PRODUCT USED FOR UNKNOWN INDICATION
     Dosage: 15 MG, ONCE A DAY
     Route: 048
     Dates: start: 20160725, end: 20160726
  3. OLANZAPINE. [Suspect]
     Active Substance: OLANZAPINE
     Dosage: 15 MG, ONCE A DAY
     Route: 048
     Dates: start: 20160806, end: 20160809
  4. QUILONUM                           /00033702/ [Suspect]
     Active Substance: LITHIUM CARBONATE
     Indication: PRODUCT USED FOR UNKNOWN INDICATION
     Dosage: 675 MG, ONCE A DAY
     Route: 048
  5. MOVICOL [Concomitant]
     Active Substance: POLYETHYLENE GLYCOL 3350\POTASSIUM CHLORIDE\SODIUM BICARBONATE\SODIUM CHLORIDE
     Indication: PRODUCT USED FOR UNKNOWN INDICATION
     Dosage: UNK
  6. GLIMEPRID [Concomitant]
     Active Substance: GLIMEPIRIDE
     Indication: PRODUCT USED FOR UNKNOWN INDICATION
  7. ROHYPNOL [Suspect]
     Active Substance: FLUNITRAZEPAM
     Indication: PRODUCT USED FOR UNKNOWN INDICATION
     Dosage: 1 MG, ONCE A DAY
     Route: 048
     Dates: start: 20160726, end: 20160728
  8. PANTOZOL [Concomitant]
     Active Substance: PANTOPRAZOLE SODIUM
     Indication: PRODUCT USED FOR UNKNOWN INDICATION
  9. OLANZAPINE. [Suspect]
     Active Substance: OLANZAPINE
     Dosage: 10 MG, ONCE A DAY
     Route: 048
     Dates: start: 20160810
  10. ROHYPNOL [Suspect]
     Active Substance: FLUNITRAZEPAM
     Dosage: 1.5 MG, ONCE A DAY
     Route: 048
     Dates: start: 20160729, end: 20160729
  11. ENALAPRIL [Concomitant]
     Active Substance: ENALAPRIL
     Indication: PRODUCT USED FOR UNKNOWN INDICATION
  12. VIGANTOLETTEN [Concomitant]
     Active Substance: CHOLECALCIFEROL
     Indication: PRODUCT USED FOR UNKNOWN INDICATION
  13. METFORMIN [Concomitant]
     Active Substance: METFORMIN HYDROCHLORIDE
     Indication: PRODUCT USED FOR UNKNOWN INDICATION
  14. OLANZAPINE. [Suspect]
     Active Substance: OLANZAPINE
     Dosage: 10 MG, ONCE A DAY
     Route: 048
     Dates: start: 20160719, end: 20160724
  15. OLANZAPINE. [Suspect]
     Active Substance: OLANZAPINE
     Dosage: 20 MG, ONCE A DAY
     Route: 048
     Dates: start: 20160727, end: 20160805
  16. ROHYPNOL [Suspect]
     Active Substance: FLUNITRAZEPAM
     Dosage: 0.5 MG, ONCE A DAY
     Route: 048
     Dates: start: 20160906
  17. TAMSULOSIN [Concomitant]
     Active Substance: TAMSULOSIN
     Indication: PRODUCT USED FOR UNKNOWN INDICATION

REACTIONS (5)
  - Logorrhoea [Recovered/Resolved]
  - Urinary incontinence [Recovered/Resolved]
  - Disturbance in attention [Recovered/Resolved]
  - Anal incontinence [Recovered/Resolved]
  - Memory impairment [Recovered/Resolved]

NARRATIVE: CASE EVENT DATE: 20160805
